FAERS Safety Report 14081759 (Version 1)
Quarter: 2017Q4

REPORT INFORMATION
  Report Type: Spontaneous
  Country: US (occurrence: US)
  Receive Date: 20171012
  Receipt Date: 20171012
  Transmission Date: 20180321
  Serious: No
  Sender: FDA-Public Use
  Company Number: US-MYLANLABS-2017M1046282

PATIENT
  Age: 52 Year
  Sex: Female

DRUGS (2)
  1. FENTANYL. [Suspect]
     Active Substance: FENTANYL
     Indication: PAIN
     Dosage: 25 ?G, QH, CHANGE Q48H
     Route: 062
  2. FENTANYL. [Suspect]
     Active Substance: FENTANYL
     Indication: PAIN
     Dosage: 12.5 ?G, QH, CHANGE Q48H
     Route: 062

REACTIONS (3)
  - Application site rash [Not Recovered/Not Resolved]
  - Application site irritation [Not Recovered/Not Resolved]
  - Application site erythema [Not Recovered/Not Resolved]

NARRATIVE: CASE EVENT DATE: 201706
